FAERS Safety Report 26193770 (Version 1)
Quarter: 2025Q4

REPORT INFORMATION
  Report Type: Spontaneous
  Country: EU (occurrence: EU)
  Receive Date: 20251224
  Receipt Date: 20251224
  Transmission Date: 20260117
  Serious: Yes (Death)
  Sender: PTC THERAPEUTICS
  Company Number: EU-PTC THERAPEUTICS INC.-IT-2025PTC001436

PATIENT
  Age: 2 Year
  Sex: Female

DRUGS (1)
  1. ELADOCAGENE EXUPARVOVEC [Suspect]
     Active Substance: ELADOCAGENE EXUPARVOVEC
     Indication: Product used for unknown indication
     Dosage: UNK
     Route: 065

REACTIONS (1)
  - Death [Fatal]

NARRATIVE: CASE EVENT DATE: 20251217
